FAERS Safety Report 9866645 (Version 3)
Quarter: 2014Q1

REPORT INFORMATION
  Report Type: Spontaneous
  Country: EE (occurrence: EE)
  Receive Date: 20140204
  Receipt Date: 20140228
  Transmission Date: 20141002
  Serious: Yes (Other)
  Sender: FDA-Public Use
  Company Number: EE-ROCHE-1336591

PATIENT
  Age: 5 Year
  Sex: Female
  Weight: 19 kg

DRUGS (14)
  1. ROACTEMRA [Suspect]
     Indication: JUVENILE IDIOPATHIC ARTHRITIS
     Route: 042
     Dates: start: 20131002
  2. ROACTEMRA [Suspect]
     Route: 042
     Dates: start: 20131015
  3. ROACTEMRA [Suspect]
     Route: 042
     Dates: start: 20131029
  4. ROACTEMRA [Suspect]
     Route: 042
     Dates: start: 20131111
  5. ROACTEMRA [Suspect]
     Route: 042
     Dates: start: 20131126
  6. ROACTEMRA [Suspect]
     Route: 042
     Dates: start: 20131210
  7. ROACTEMRA [Suspect]
     Route: 042
     Dates: start: 20131230
  8. ROACTEMRA [Suspect]
     Route: 042
     Dates: start: 20140120
  9. DICLOFENAC [Concomitant]
     Route: 065
     Dates: start: 201106
  10. PREDNISOLONE [Concomitant]
     Dosage: PERIODICALLY
     Route: 065
     Dates: start: 201106
  11. PREDNISOLONE [Concomitant]
     Route: 065
     Dates: start: 201106
  12. METHOTREXATE [Concomitant]
     Route: 065
     Dates: start: 201107
  13. ENBREL [Concomitant]
     Route: 065
     Dates: start: 201311
  14. HUMIRA [Concomitant]

REACTIONS (1)
  - Haematoma [Recovered/Resolved]
